FAERS Safety Report 5899460-9 (Version None)
Quarter: 2008Q3

REPORT INFORMATION
  Report Type: 
  Country: None (occurrence: None)
  Receive Date: 20080926
  Receipt Date: 20080730
  Transmission Date: 20090109
  Serious: Yes (Death)
  Sender: FDA-Public Use
  Company Number: DK-RANBAXY-2008RR-18148

PATIENT
  Sex: Male

DRUGS (5)
  1. PRAVASTATIN RANBAXY 10MG TABLETTER [Suspect]
     Indication: HYPERCHOLESTEROLAEMIA
  2. ESOPRAL [Suspect]
     Indication: HYPERTENSION
  3. CENTYL MED KALIUMKLORID [Concomitant]
     Route: 048
  4. SOTALOL [Concomitant]
     Indication: HYPERTENSION
     Dosage: 40 MG, QD
  5. MAGNYL ^DAK^ [Concomitant]
     Indication: THROMBOSIS PROPHYLAXIS
     Dosage: 100 MG, QD
     Route: 048

REACTIONS (1)
  - RHABDOMYOLYSIS [None]
